FAERS Safety Report 25577274 (Version 1)
Quarter: 2025Q3

REPORT INFORMATION
  Report Type: Spontaneous
  Country: EU (occurrence: EU)
  Receive Date: 20250718
  Receipt Date: 20250718
  Transmission Date: 20251021
  Serious: Yes (Other)
  Sender: TEVA
  Company Number: None

PATIENT
  Age: 54 Year
  Sex: Female
  Weight: 45 kg

DRUGS (3)
  1. FILGRASTIM [Suspect]
     Active Substance: FILGRASTIM
     Indication: Chemotherapy side effect prophylaxis
     Route: 058
     Dates: start: 20241224, end: 20250607
  2. PEGFILGRASTIM [Suspect]
     Active Substance: PEGFILGRASTIM
     Indication: Chemotherapy side effect prophylaxis
     Dosage: 1 INJECTION EVERY 3 WEEKS
     Route: 058
     Dates: start: 20241231, end: 20250515
  3. TRODELVY [Concomitant]
     Active Substance: SACITUZUMAB GOVITECAN-HZIY
     Indication: Product used for unknown indication
     Route: 065

REACTIONS (2)
  - Intestinal metastasis [Recovered/Resolved with Sequelae]
  - Mechanical ileus [Recovered/Resolved with Sequelae]

NARRATIVE: CASE EVENT DATE: 20250609
